FAERS Safety Report 8919132 (Version 1)
Quarter: 2012Q4

REPORT INFORMATION
  Report Type: 
  Country: US (occurrence: US)
  Receive Date: 20121121
  Receipt Date: 20121121
  Transmission Date: 20130627
  Serious: No
  Sender: FDA-Public Use
  Company Number: US-B.I. PHARMACEUTICALS,INC./RIDGEFIELD-2012-BI-00802BP

PATIENT
  Sex: Female

DRUGS (1)
  1. PRADAXA [Suspect]
     Route: 048

REACTIONS (6)
  - Malaise [Unknown]
  - Drug ineffective [Unknown]
  - Ill-defined disorder [Unknown]
  - Blood cholesterol abnormal [Unknown]
  - Ageusia [Unknown]
  - Eating disorder [Unknown]
